FAERS Safety Report 23144714 (Version 1)
Quarter: 2023Q4

REPORT INFORMATION
  Report Type: Spontaneous
  Country: CA (occurrence: CA)
  Receive Date: 20231103
  Receipt Date: 20231103
  Transmission Date: 20240110
  Serious: No
  Sender: FDA-Public Use
  Company Number: CA-SCALL-2023-AMR-111726

PATIENT
  Sex: Female

DRUGS (8)
  1. DUTASTERIDE [Suspect]
     Active Substance: DUTASTERIDE
     Indication: Hidradenitis
     Route: 065
  2. CLINDAMYCIN [Suspect]
     Active Substance: CLINDAMYCIN
     Indication: Hidradenitis
     Route: 065
  3. ALDACTONE [Suspect]
     Active Substance: SPIRONOLACTONE
     Indication: Hidradenitis
     Route: 065
  4. MOMETASONE FUROATE [Suspect]
     Active Substance: MOMETASONE FUROATE
     Indication: Hidradenitis
     Route: 065
  5. KENALOG [Suspect]
     Active Substance: TRIAMCINOLONE ACETONIDE
     Indication: Hidradenitis
     Route: 014
  6. METFORMIN [Suspect]
     Active Substance: METFORMIN HYDROCHLORIDE
     Indication: Hidradenitis
     Route: 065
  7. MINOCYCLINE [Suspect]
     Active Substance: MINOCYCLINE HYDROCHLORIDE
     Indication: Hidradenitis
     Route: 065
  8. RESORCINOL [Suspect]
     Active Substance: RESORCINOL
     Indication: Hidradenitis
     Route: 065

REACTIONS (7)
  - Abscess [Unknown]
  - Inflammation [Unknown]
  - Mental disorder [Unknown]
  - Nodule [Unknown]
  - Pain [Unknown]
  - Skin lesion [Unknown]
  - Drug ineffective [Unknown]
